FAERS Safety Report 8071468 (Version 2)
Quarter: 2012Q4

REPORT INFORMATION
  Report Type: 
  Country: US (occurrence: US)
  Receive Date: 20110805
  Receipt Date: 20121005
  Transmission Date: 20130627
  Serious: Yes (Other)
  Sender: FDA-Public Use
  Company Number: US-US-EMD SERONO, INC.-7074436

PATIENT
  Age: 21 None
  Sex: Female

DRUGS (2)
  1. REBIF [Suspect]
     Indication: PRODUCT USED FOR UNKNOWN INDICATION
     Route: 058
     Dates: start: 20070215, end: 200909
  2. REBIF [Suspect]
     Dates: start: 2010, end: 201102

REACTIONS (2)
  - Ectopic pregnancy [Recovered/Resolved]
  - Foetal exposure during pregnancy [Recovered/Resolved]
